FAERS Safety Report 14092677 (Version 3)
Quarter: 2017Q4

REPORT INFORMATION
  Report Type: Spontaneous
  Country: CH (occurrence: CH)
  Receive Date: 20171016
  Receipt Date: 20171211
  Transmission Date: 20180321
  Serious: Yes (Hospitalization, Other)
  Sender: FDA-Public Use
  Company Number: CH-GLAXOSMITHKLINE-CH2017156993

PATIENT
  Age: 43 Year
  Sex: Female

DRUGS (13)
  1. FOCALIN [Concomitant]
     Active Substance: DEXMETHYLPHENIDATE HYDROCHLORIDE
     Dosage: 5 MG, QD
  2. VOLTAREN [Suspect]
     Active Substance: DICLOFENAC SODIUM
     Indication: BACK PAIN
     Dosage: 50 MG, BID
     Route: 048
  3. LUCRIN DEPOT [Suspect]
     Active Substance: LEUPROLIDE ACETATE
     Indication: BREAST CANCER
     Dosage: 3.75 MG, UNK
     Route: 058
     Dates: start: 20170915, end: 20170915
  4. VENLAFAXINE [Concomitant]
     Active Substance: VENLAFAXINE HYDROCHLORIDE
     Dosage: 225 TO 375 MG/DAY
  5. XANAX [Concomitant]
     Active Substance: ALPRAZOLAM
     Dosage: 1 MG, QD
  6. NOVALGIN [Suspect]
     Active Substance: METAMIZOLE SODIUM
     Indication: BACK PAIN
     Dosage: 500 MG, 8QD
     Route: 048
  7. TAMOXIFEN [Suspect]
     Active Substance: TAMOXIFEN
     Indication: BREAST CANCER
     Dosage: UNK
     Route: 048
     Dates: start: 20170608
  8. TAMOXIFEN [Suspect]
     Active Substance: TAMOXIFEN
     Dosage: 10 MG, BID
     Route: 048
     Dates: start: 20170915, end: 20170918
  9. LYRICA [Concomitant]
     Active Substance: PREGABALIN
     Dosage: 75 MG, Q12H
  10. TAMOXIFEN [Suspect]
     Active Substance: TAMOXIFEN
     Indication: METASTASES TO BONE
     Dosage: 10 MG, BID
     Route: 048
     Dates: start: 20170608, end: 201706
  11. PARACETAMOL [Concomitant]
     Active Substance: ACETAMINOPHEN
     Dosage: 1000 MG, Q6H
  12. XGEVA [Suspect]
     Active Substance: DENOSUMAB
     Indication: BREAST CANCER
     Dosage: 120 MG, UNK
     Route: 058
     Dates: start: 20170915, end: 20170915
  13. HYDROCORTISONE. [Concomitant]
     Active Substance: HYDROCORTISONE
     Dosage: 10 MG, QD

REACTIONS (6)
  - Dysphonia [Unknown]
  - Urticaria [Unknown]
  - Hypersensitivity [Unknown]
  - Dyspnoea [Unknown]
  - Pruritus generalised [Unknown]
  - Dysphagia [Unknown]

NARRATIVE: CASE EVENT DATE: 20170919
